FAERS Safety Report 5758645-2 (Version None)
Quarter: 2008Q2

REPORT INFORMATION
  Report Type: 
  Country: None (occurrence: None)
  Receive Date: 20080604
  Receipt Date: 20080527
  Transmission Date: 20081010
  Serious: Yes (Other)
  Sender: FDA-Public Use
  Company Number: DE-JNJFOC-20080505711

PATIENT
  Sex: Male

DRUGS (2)
  1. DURAGESIC-100 [Suspect]
     Indication: DRUG USE FOR UNKNOWN INDICATION
     Route: 062
  2. NALOXON [Suspect]
     Indication: CONSTIPATION
     Route: 065

REACTIONS (2)
  - BLOOD PRESSURE INCREASED [None]
  - CONSTIPATION [None]
